FAERS Safety Report 13793764 (Version 1)
Quarter: 2017Q3

REPORT INFORMATION
  Report Type: Spontaneous
  Country: US (occurrence: US)
  Receive Date: 20170726
  Receipt Date: 20170726
  Transmission Date: 20171127
  Serious: Yes (Other)
  Sender: FDA-Public Use
  Company Number: US-ROCHE-1964863

PATIENT
  Age: 56 Year
  Sex: Male
  Weight: 79.45 kg

DRUGS (2)
  1. OCREVUS [Suspect]
     Active Substance: OCRELIZUMAB
     Indication: MULTIPLE SCLEROSIS RELAPSE
     Route: 065
     Dates: start: 20170614, end: 20170706
  2. OCREVUS [Suspect]
     Active Substance: OCRELIZUMAB
     Route: 065

REACTIONS (5)
  - Mood swings [Not Recovered/Not Resolved]
  - Musculoskeletal stiffness [Not Recovered/Not Resolved]
  - Paraesthesia [Not Recovered/Not Resolved]
  - Drug dose omission [Unknown]
  - Hypoaesthesia [Not Recovered/Not Resolved]

NARRATIVE: CASE EVENT DATE: 20170628
